FAERS Safety Report 8058909-6 (Version None)
Quarter: 2012Q1

REPORT INFORMATION
  Report Type: 
  Country: None (occurrence: None)
  Receive Date: 20120120
  Receipt Date: 20110930
  Transmission Date: 20120608
  Serious: No
  Sender: FDA-Public Use
  Company Number: US-BRISTOL-MYERS SQUIBB COMPANY-16121048

PATIENT
  Sex: Female

DRUGS (1)
  1. YERVOY [Suspect]
     Dosage: 21SEP11

REACTIONS (2)
  - RASH [None]
  - PAIN IN EXTREMITY [None]
